FAERS Safety Report 22170448 (Version 1)
Quarter: 2023Q2

REPORT INFORMATION
  Report Type: Report from Study
  Country: PL (occurrence: PL)
  Receive Date: 20230404
  Receipt Date: 20230404
  Transmission Date: 20230722
  Serious: Yes (Death, Hospitalization, Other)
  Sender: FDA-Public Use
  Company Number: PL-CELGENE-POL-2016072250

PATIENT
  Age: 66 Year
  Sex: Male
  Weight: 68 kg

DRUGS (28)
  1. PLACEBO [Suspect]
     Active Substance: UNSPECIFIED INGREDIENT
     Indication: Diffuse large B-cell lymphoma
     Dosage: 15 MG?DURATION TEXT : CYCLE1
     Route: 048
     Dates: start: 20160428
  2. PLACEBO [Suspect]
     Active Substance: UNSPECIFIED INGREDIENT
     Dosage: 15 MG
     Route: 048
     Dates: start: 20160609, end: 20160716
  3. CYCLOPHOSPHAMIDE [Suspect]
     Active Substance: CYCLOPHOSPHAMIDE
     Indication: Diffuse large B-cell lymphoma
     Dosage: DURATION TEXT : CYCLE 1
     Route: 042
     Dates: start: 20160428
  4. CYCLOPHOSPHAMIDE [Suspect]
     Active Substance: CYCLOPHOSPHAMIDE
     Route: 042
     Dates: start: 20160609, end: 20160716
  5. DOXORUBICIN [Suspect]
     Active Substance: DOXORUBICIN
     Indication: Diffuse large B-cell lymphoma
     Route: 042
     Dates: start: 20160428
  6. DOXORUBICIN [Suspect]
     Active Substance: DOXORUBICIN
     Route: 042
     Dates: start: 20160609, end: 20160716
  7. RITUXIMAB [Suspect]
     Active Substance: RITUXIMAB
     Indication: Diffuse large B-cell lymphoma
     Route: 042
     Dates: start: 20160428
  8. RITUXIMAB [Suspect]
     Active Substance: RITUXIMAB
     Route: 042
     Dates: start: 20160609, end: 20160716
  9. VINCRISTINE [Suspect]
     Active Substance: VINCRISTINE
     Indication: Diffuse large B-cell lymphoma
     Dosage: 1.4MG/M2?DURATION TEXT : CYCLE 1
     Route: 042
     Dates: start: 20160428
  10. VINCRISTINE [Suspect]
     Active Substance: VINCRISTINE
     Dosage: 1.4MG/M2
     Route: 042
     Dates: start: 20160609, end: 20160716
  11. PREDNISOLONE [Suspect]
     Active Substance: PREDNISOLONE
     Indication: Diffuse large B-cell lymphoma
     Dosage: 100 MG?DURATION TEXT : CYCEL 1
     Route: 048
     Dates: start: 20160428
  12. PREDNISOLONE [Suspect]
     Active Substance: PREDNISOLONE
     Route: 048
     Dates: start: 20160609, end: 20160716
  13. HYPLAFIN [Concomitant]
     Indication: Benign prostatic hyperplasia
     Dosage: 5 MG
     Route: 048
     Dates: start: 2014, end: 20160610
  14. DOZOX [Concomitant]
     Indication: Benign prostatic hyperplasia
     Dosage: 4 MG
     Route: 048
     Dates: start: 2014, end: 20160610
  15. ASPIRIN [Concomitant]
     Active Substance: ASPIRIN
     Indication: Thrombosis prophylaxis
     Dosage: 200 MG
     Route: 048
     Dates: start: 20160505
  16. ONDANSETRON [Concomitant]
     Active Substance: ONDANSETRON
     Indication: Prophylaxis of nausea and vomiting
     Dosage: FREQUENCY TEXT: AS NEEDED?NOT PROVIDED
     Route: 042
     Dates: start: 20160428, end: 20160609
  17. ONDANSETRON [Concomitant]
     Active Substance: ONDANSETRON
  18. Corhydron hydrocortisonum [Concomitant]
     Indication: Premedication
     Dosage: FREQUENCY TEXT: PRN?NOT PROVIDED
     Route: 042
     Dates: start: 20160428, end: 20160609
  19. ACETAMINOPHEN [Concomitant]
     Active Substance: ACETAMINOPHEN
     Indication: Premedication
     Dosage: FREQUENCY TEXT: AS NEEDED?NOT PROVIDED
     Route: 048
     Dates: start: 20160428, end: 20160609
  20. ACETAMINOPHEN [Concomitant]
     Active Substance: ACETAMINOPHEN
     Dosage: FREQUENCY TEXT: NOT PROVIDED?NOT PROVIDED
     Dates: start: 20160707, end: 20160714
  21. ACETAMINOPHEN [Concomitant]
     Active Substance: ACETAMINOPHEN
     Dosage: NOT PROVIDED
     Dates: start: 20160715, end: 20160715
  22. TAMSULOSIN HYDROCHLORIDE [Concomitant]
     Active Substance: TAMSULOSIN HYDROCHLORIDE
     Indication: Benign prostatic hyperplasia
     Dosage: 0.4MG
     Route: 048
     Dates: start: 20160610
  23. GRANULOCYTE COLONY-STIMULATING FACTOR NOS [Concomitant]
     Active Substance: GRANULOCYTE COLONY-STIMULATING FACTOR NOS
     Indication: Infection prophylaxis
     Dosage: FREQUENCY TEXT: NOT PROVIDED
     Dates: start: 20160610, end: 20160614
  24. HYDROCORTISONE [Concomitant]
     Active Substance: HYDROCORTISONE
     Indication: Product used for unknown indication
  25. DOXAZOSIN MESYLATE [Concomitant]
     Active Substance: DOXAZOSIN MESYLATE
     Indication: Product used for unknown indication
  26. TAMSULOSIN [Concomitant]
     Active Substance: TAMSULOSIN
     Indication: Product used for unknown indication
  27. FINASTERIDE [Concomitant]
     Active Substance: FINASTERIDE
     Indication: Product used for unknown indication
  28. GRANULOCYTE COLONY-STIMULATING FACTOR NOS [Concomitant]
     Active Substance: GRANULOCYTE COLONY-STIMULATING FACTOR NOS
     Indication: Product used for unknown indication

REACTIONS (4)
  - Dyspnoea [Fatal]
  - Pneumonia [Recovered/Resolved]
  - Dehydration [Recovered/Resolved]
  - Anaemia [Recovered/Resolved]

NARRATIVE: CASE EVENT DATE: 20160623
